FAERS Safety Report 4718253-9 (Version None)
Quarter: 2005Q3

REPORT INFORMATION
  Report Type: 
  Country: None (occurrence: None)
  Receive Date: 20050718
  Receipt Date: 20050718
  Transmission Date: 20060218
  Serious: Yes (Other)
  Sender: FDA-Public Use
  Company Number: None

PATIENT
  Age: 85 Year
  Sex: Female
  Weight: 44.4525 kg

DRUGS (1)
  1. DURAGESIC-25 [Suspect]
     Indication: ARTHRITIS
     Dosage: 25MG 1 EVERY 3 DAYS TRANSDERMAL
     Route: 062
     Dates: start: 20050705, end: 20050715

REACTIONS (2)
  - ANOREXIA [None]
  - LETHARGY [None]
